FAERS Safety Report 7905097-X (Version None)
Quarter: 2011Q4

REPORT INFORMATION
  Report Type: 
  Country: None (occurrence: None)
  Receive Date: 20111109
  Receipt Date: 20111107
  Transmission Date: 20120403
  Serious: Yes (Death)
  Sender: FDA-Public Use
  Company Number: PHEH2011US008834

PATIENT
  Sex: Female
  Weight: 90 kg

DRUGS (5)
  1. TOBI [Suspect]
     Indication: BACTERIAL DISEASE CARRIER
  2. TOBI [Suspect]
     Indication: ASTHMA
  3. AZITHROMYCIN [Concomitant]
     Indication: MYCOBACTERIUM AVIUM COMPLEX INFECTION
  4. TOBI [Suspect]
     Indication: BRONCHIECTASIS
     Dosage: 300 MG, BID
     Dates: start: 20091124, end: 20110701
  5. AZITHROMYCIN [Concomitant]
     Indication: BRONCHIECTASIS
     Dosage: 250 MG, QD
     Route: 048
     Dates: start: 20060101

REACTIONS (4)
  - PSEUDOMONAS INFECTION [None]
  - COUGH [None]
  - RESPIRATORY TRACT INFECTION [None]
  - DYSPNOEA [None]
